FAERS Safety Report 25391895 (Version 1)
Quarter: 2025Q2

REPORT INFORMATION
  Report Type: Spontaneous
  Country: ES (occurrence: ES)
  Receive Date: 20250603
  Receipt Date: 20250603
  Transmission Date: 20250717
  Serious: Yes (Other)
  Sender: PFIZER
  Company Number: None

PATIENT
  Age: 78 Year
  Sex: Female

DRUGS (13)
  1. RUXIENCE [Suspect]
     Active Substance: RITUXIMAB-PVVR
     Indication: Rheumatoid arthritis
     Route: 042
     Dates: start: 20250505
  2. OMEPRAZOL GOBENS [Concomitant]
     Dosage: 20 MG, DAILY
     Route: 048
     Dates: start: 20120509
  3. TOUJEO [Concomitant]
     Active Substance: INSULIN GLARGINE
     Dosage: 25 IU, DAILY WITH BREAKFAST
     Route: 058
     Dates: start: 20241119
  4. RYBELSUS [Concomitant]
     Active Substance: SEMAGLUTIDE
     Dosage: 7 MG, DAILY
     Route: 048
     Dates: start: 20240905
  5. VALSARTAN NORMON [Concomitant]
     Dosage: 80 MG, DAILY
     Route: 048
     Dates: start: 20250114
  6. ATORDUO [Concomitant]
     Dosage: 1 DF, DAILY
     Route: 048
     Dates: start: 20240304
  7. PREDNISONE [Concomitant]
     Active Substance: PREDNISONE
     Dosage: 5 MG, DAILY
     Route: 048
     Dates: start: 20241115
  8. LEVOTHYROXINE SODIUM [Concomitant]
     Active Substance: LEVOTHYROXINE SODIUM
     Dosage: 50 UG, DAILY
     Route: 048
     Dates: start: 20160506
  9. SULFAMETHOXAZOLE\TRIMETHOPRIM [Concomitant]
     Active Substance: SULFAMETHOXAZOLE\TRIMETHOPRIM
     Dosage: 1 DF, DAILY
     Route: 048
     Dates: start: 20250428
  10. LEFLUNOMIDA NORMON [Concomitant]
     Dosage: 10 MG, DAILY
     Route: 048
     Dates: start: 20250428
  11. CALCIFEDIOL [Concomitant]
     Active Substance: CALCIFEDIOL
     Dosage: 0.26 MG, MONTHLY
     Route: 048
     Dates: start: 20200103
  12. AZITROMICINA TEVA [AZITHROMYCIN DIHYDRATE] [Concomitant]
     Dosage: 250 MG, EVERY 3 WEEKS
     Route: 048
     Dates: start: 20210125
  13. RISEDRONATE SODIUM [Concomitant]
     Active Substance: RISEDRONATE SODIUM
     Route: 048
     Dates: start: 20201228

REACTIONS (1)
  - Hypertensive crisis [Recovered/Resolved]

NARRATIVE: CASE EVENT DATE: 20250505
